FAERS Safety Report 7041750-0 (Version None)
Quarter: 2010Q4

REPORT INFORMATION
  Report Type: 
  Country: None (occurrence: None)
  Receive Date: 20101013
  Receipt Date: 20091026
  Transmission Date: 20110411
  Serious: No
  Sender: FDA-Public Use
  Company Number: US-ASTRAZENECA-2009SE22649

PATIENT
  Age: 63 Year
  Sex: Female
  Weight: 54.4 kg

DRUGS (5)
  1. SYMBICORT [Suspect]
     Dosage: 2 PUFFS
     Route: 055
     Dates: end: 20091001
  2. ZOCOR [Concomitant]
     Route: 065
  3. VIT B12 [Concomitant]
     Route: 065
  4. VIT D [Concomitant]
     Route: 065
  5. CALCIUM [Concomitant]
     Route: 065

REACTIONS (2)
  - CHEST DISCOMFORT [None]
  - DYSPNOEA [None]
